FAERS Safety Report 21850889 (Version 2)
Quarter: 2024Q2

REPORT INFORMATION
  Report Type: Report from Study
  Country: BR (occurrence: BR)
  Receive Date: 20230111
  Receipt Date: 20240603
  Transmission Date: 20240716
  Serious: Yes (Other)
  Sender: FDA-Public Use
  Company Number: BR-CELLTRION INC.-2022BR019026

PATIENT

DRUGS (8)
  1. INFLIXIMAB [Suspect]
     Active Substance: INFLIXIMAB
     Indication: Crohn^s disease
     Dosage: 3 AMPOULES OF 100MG, EVERY 2 MONTHS
     Route: 042
  2. INFLIXIMAB [Suspect]
     Active Substance: INFLIXIMAB
     Dosage: 3 AMPOULES EVERY 2 MONTHS
     Route: 042
     Dates: start: 20240412
  3. DEFLAZACORT [Concomitant]
     Active Substance: DEFLAZACORT
     Indication: Arthritis
     Dosage: ONCE PER DAY AFTER BREAKFAST
     Route: 048
  4. DEFLAZACORT [Concomitant]
     Active Substance: DEFLAZACORT
     Indication: Osteoarthritis
  5. FOLIC ACID [Concomitant]
     Active Substance: FOLIC ACID
     Indication: Vitamin supplementation
     Dosage: ONCE PER DAY
     Route: 048
  6. PANTOPRAZOLE [Concomitant]
     Active Substance: PANTOPRAZOLE
     Dosage: ONCE PER DAY
     Route: 048
  7. ACETAMINOPHEN [Concomitant]
     Active Substance: ACETAMINOPHEN
     Indication: Analgesic therapy
     Dosage: ONE WHEN HAS PAIN
     Route: 048
  8. ACETAMINOPHEN [Concomitant]
     Active Substance: ACETAMINOPHEN
     Indication: Pain
     Dosage: 200 MILLIGRAM

REACTIONS (9)
  - Facial paralysis [Unknown]
  - Deafness unilateral [Unknown]
  - Tinnitus [Recovering/Resolving]
  - Muscle spasms [Recovering/Resolving]
  - Hypoacusis [Recovered/Resolved]
  - Ear haemorrhage [Unknown]
  - Snake bite [Unknown]
  - Myalgia [Unknown]
  - Arthralgia [Unknown]
